FAERS Safety Report 9738984 (Version 1)
Quarter: 2013Q4

REPORT INFORMATION
  Report Type: Report from Study
  Country: MX (occurrence: MX)
  Receive Date: 20131209
  Receipt Date: 20131209
  Transmission Date: 20140711
  Serious: Yes (Other)
  Sender: FDA-Public Use
  Company Number: PHHY2013MX142958

PATIENT
  Age: 51 Year
  Sex: Female

DRUGS (3)
  1. DIOVAN [Suspect]
     Indication: HYPERTENSION
     Dosage: 1 DF (80MG), DAILY
     Route: 048
  2. DIOVAN [Suspect]
     Dosage: 160 MG, PRN
  3. ZANIDIP [Concomitant]
     Indication: HYPERTENSION
     Dosage: 1 DF (10MG), QHS

REACTIONS (5)
  - Systemic lupus erythematosus [Not Recovered/Not Resolved]
  - Pulmonary fibrosis [Not Recovered/Not Resolved]
  - Tachycardia [Unknown]
  - Stress [Not Recovered/Not Resolved]
  - Hypertension [Not Recovered/Not Resolved]
